FAERS Safety Report 25113537 (Version 1)
Quarter: 2025Q1

REPORT INFORMATION
  Report Type: Spontaneous
  Country: US (occurrence: None)
  Receive Date: 20250322
  Receipt Date: 20250322
  Transmission Date: 20250409
  Serious: Yes (Life-Threatening)
  Sender: FDA-CTU
  Company Number: None

PATIENT

DRUGS (1)
  1. 7-HYDROXYMITRAGYNINE [Suspect]
     Active Substance: 7-HYDROXYMITRAGYNINE
     Dosage: 3 TIMES A DAY ORAL
     Route: 048
     Dates: start: 20250107

REACTIONS (2)
  - Product colour issue [None]
  - Unevaluable event [None]

NARRATIVE: CASE EVENT DATE: 20250304
